FAERS Safety Report 4916835-2 (Version None)
Quarter: 2006Q1

REPORT INFORMATION
  Report Type: 
  Country: None (occurrence: None)
  Receive Date: 20060216
  Receipt Date: 20060216
  Transmission Date: 20060701
  Serious: Yes (Hospitalization)
  Sender: FDA-Public Use
  Company Number: None

PATIENT
  Sex: Female
  Weight: 72 kg

DRUGS (10)
  1. TOPOTECAN 1 MG [Suspect]
     Indication: CERVIX CARCINOMA
     Dosage: 2 MG/M2 IV
     Route: 042
     Dates: start: 20060110, end: 20060131
  2. CISPLATIN [Suspect]
     Indication: CERVIX CARCINOMA
     Dosage: 40 MG/M2 IV
     Route: 042
     Dates: start: 20060110, end: 20060131
  3. MYSTATIN CREASM [Concomitant]
  4. LOMOTIL DIPHENOXYLATE AND ATROPINE SULFATE TABLET [Concomitant]
  5. COMPAZINE [Concomitant]
  6. ACETAMINOPHEN [Concomitant]
  7. DIBUCAINE OINT [Concomitant]
  8. AQUAPHOR HYDROPHILILIC PETROLATUM OINT [Concomitant]
  9. PYRIDIUM PHENAZOPYRIDINE HCL [Concomitant]
  10. FERROUS SULFATE TAB [Concomitant]

REACTIONS (10)
  - CHILLS [None]
  - COLD SWEAT [None]
  - CONSTIPATION [None]
  - DECREASED APPETITE [None]
  - DIARRHOEA [None]
  - DYSURIA [None]
  - FEBRILE NEUTROPENIA [None]
  - HAEMORRHOIDS [None]
  - MICTURITION URGENCY [None]
  - POST PROCEDURAL COMPLICATION [None]
